FAERS Safety Report 5783131-3 (Version None)
Quarter: 2008Q2

REPORT INFORMATION
  Report Type: 
  Country: None (occurrence: None)
  Receive Date: 20080619
  Receipt Date: 20080611
  Transmission Date: 20081010
  Serious: Yes (Hospitalization)
  Sender: FDA-Public Use
  Company Number: OMPQ-NO-0712S-1373

PATIENT
  Sex: Female

DRUGS (4)
  1. OMNIPAQUE 140 [Suspect]
     Indication: DRUG USE FOR UNKNOWN INDICATION
     Dosage: SINGLE DOSE
     Dates: start: 20071203, end: 20071203
  2. SULFASALAZINE (SALAZOPYRIN) [Concomitant]
  3. LACTOBACILLUS BIFIDUS (LAC B) [Concomitant]
  4. FERROUS CITRATE [Concomitant]

REACTIONS (2)
  - NEUTROPHIL COUNT DECREASED [None]
  - WHITE BLOOD CELL COUNT DECREASED [None]
